FAERS Safety Report 7637903-0 (Version None)
Quarter: 2011Q3

REPORT INFORMATION
  Report Type: 
  Country: None (occurrence: None)
  Receive Date: 20110720
  Receipt Date: 20110705
  Transmission Date: 20111222
  Serious: Yes (Congenital Anomaly)
  Sender: FDA-Public Use
  Company Number: AUR-APU-2011-04109

PATIENT
  Sex: Male

DRUGS (9)
  1. RIBAVIRIN [Suspect]
     Indication: HEPATITIS C
     Dosage: (800 MG,1 D),TRANSPLACENTAL
     Route: 064
  2. RIBASPHERE [Suspect]
     Indication: HEPATITIS C
     Dosage: TRANSPLACENTAL
     Route: 064
  3. RIBAVIRIN [Suspect]
     Indication: HEPATITIS C
     Dosage: (800 MG,1 D),TRANSPLACENTAL
     Route: 064
  4. INTERFERON [Suspect]
     Indication: PRODUCT USED FOR UNKNOWN INDICATION
     Dosage: TRANSPLACENTAL
     Route: 064
  5. COPEGUS [Suspect]
     Indication: HEPATITIS C
     Dosage: TRANSPLACENTAL
     Route: 064
  6. REBETRON [Suspect]
     Indication: HEPATITIS C
     Dosage: TRANSPLACENTAL
     Route: 064
  7. PEGINTERFERON ALFA-2A [Suspect]
     Indication: PRODUCT USED FOR UNKNOWN INDICATION
     Dosage: 25.7143 MCG (180 MCG,1 IN 1 WK),TRANSPLACENTAL
     Route: 064
  8. REBETOL [Suspect]
     Indication: HEPATITIS C
     Dosage: TRANSPLACENTAL
     Route: 064
  9. INTERFERON ALFA [Suspect]
     Indication: PRODUCT USED FOR UNKNOWN INDICATION
     Dosage: (3-7 TIMES PER WEEK),TRANSPLACENTAL
     Route: 064

REACTIONS (2)
  - MATERNAL DRUGS AFFECTING FOETUS [None]
  - TRISOMY 21 [None]
